FAERS Safety Report 5160811-4 (Version None)
Quarter: 2006Q4

REPORT INFORMATION
  Report Type: 
  Country: None (occurrence: None)
  Receive Date: 20061129
  Receipt Date: 20061117
  Transmission Date: 20070319
  Serious: Yes (Life-Threatening)
  Sender: FDA-Public Use
  Company Number: JP-ABBOTT-06P-087-0350726-00

PATIENT
  Age: 34 Year
  Sex: Female

DRUGS (5)
  1. CLARITHROMYCIN [Suspect]
     Indication: ACUTE SINUSITIS
     Route: 048
     Dates: start: 20060623, end: 20060711
  2. PREDNISOLONE [Suspect]
     Indication: RHEUMATOID ARTHRITIS
     Route: 048
     Dates: end: 20060627
  3. PREDNISOLONE [Suspect]
     Route: 048
     Dates: start: 20060628
  4. TEPRENONE [Concomitant]
     Indication: GASTRITIS PROPHYLAXIS
     Route: 048
     Dates: start: 20060625
  5. HERBAL MEDICATION [Concomitant]
     Indication: DRUG USE FOR UNKNOWN INDICATION
     Dates: start: 20060908

REACTIONS (1)
  - PANCYTOPENIA [None]
